FAERS Safety Report 6535160-X (Version None)
Quarter: 2010Q1

REPORT INFORMATION
  Report Type: 
  Country: None (occurrence: None)
  Receive Date: 20100113
  Receipt Date: 20100107
  Transmission Date: 20100710
  Serious: Yes (Death, Other)
  Sender: FDA-Public Use
  Company Number: TR-ELI_LILLY_AND_COMPANY-TR201001000826

PATIENT
  Sex: Female

DRUGS (4)
  1. HUMULIN R [Suspect]
     Indication: GESTATIONAL DIABETES
     Dosage: 6 IU, EACH MORNING
     Route: 058
     Dates: start: 20090927, end: 20091211
  2. HUMULIN R [Suspect]
     Dosage: 6 IU, OTHER
     Route: 058
     Dates: start: 20090927, end: 20091211
  3. HUMULIN R [Suspect]
     Dosage: 6 IU, EACH EVENING
     Route: 058
     Dates: start: 20090927, end: 20091211
  4. HUMULIN N [Suspect]
     Indication: GESTATIONAL DIABETES
     Dosage: 8 IU, DAILY (1/D)
     Route: 058
     Dates: start: 20090927, end: 20091211

REACTIONS (2)
  - DRUG EXPOSURE DURING PREGNANCY [None]
  - STILLBIRTH [None]
